FAERS Safety Report 17988186 (Version 1)
Quarter: 2020Q3

REPORT INFORMATION
  Report Type: Spontaneous
  Country: US (occurrence: US)
  Receive Date: 20200706
  Receipt Date: 20200706
  Transmission Date: 20201103
  Serious: Yes (Hospitalization)
  Sender: FDA-Public Use
  Company Number: None

PATIENT
  Age: 63 Year
  Sex: Male
  Weight: 87.7 kg

DRUGS (1)
  1. REMDESIVIR. [Suspect]
     Active Substance: REMDESIVIR
     Indication: COVID-19
     Dates: start: 20200626, end: 20200628

REACTIONS (15)
  - Renal failure [None]
  - Dyspnoea [None]
  - Cough [None]
  - Oxygen saturation decreased [None]
  - Platelet count decreased [None]
  - Ammonia increased [None]
  - Pyrexia [None]
  - Chills [None]
  - Myalgia [None]
  - Urine output decreased [None]
  - Pneumonia viral [None]
  - Blood bilirubin increased [None]
  - Aspartate aminotransferase increased [None]
  - Nausea [None]
  - Hypotension [None]

NARRATIVE: CASE EVENT DATE: 20200629
